FAERS Safety Report 13132441 (Version 1)
Quarter: 2017Q1

REPORT INFORMATION
  Report Type: Spontaneous
  Country: US (occurrence: US)
  Receive Date: 20170120
  Receipt Date: 20170120
  Transmission Date: 20170428
  Serious: No
  Sender: FDA-Public Use
  Company Number: US-TEVA-693986USA

PATIENT
  Sex: Male
  Weight: 99.88 kg

DRUGS (1)
  1. HYDROCHLOROTHIAZIDE. [Suspect]
     Active Substance: HYDROCHLOROTHIAZIDE
     Indication: HYPERTENSION
     Route: 048

REACTIONS (6)
  - Rash [Unknown]
  - Swelling [Unknown]
  - Skin reaction [Unknown]
  - Pruritus [Unknown]
  - Allergy to chemicals [Not Recovered/Not Resolved]
  - Erythema [Unknown]
